FAERS Safety Report 7319950-1 (Version None)
Quarter: 2011Q1

REPORT INFORMATION
  Report Type: 
  Country: None (occurrence: None)
  Receive Date: 20110228
  Receipt Date: 20101223
  Transmission Date: 20110831
  Serious: No
  Sender: FDA-Public Use
  Company Number: A0901437A

PATIENT
  Age: 54 Year
  Sex: Female

DRUGS (6)
  1. TRAZODONE [Concomitant]
  2. RETIN-A [Concomitant]
     Route: 061
  3. LAMICTAL [Suspect]
     Dosage: 100MG PER DAY
     Route: 048
     Dates: start: 20100911
  4. KLONOPIN [Concomitant]
  5. DICYCLOMINE [Concomitant]
  6. ALPHA-HYDROXY-ACIDS [Concomitant]

REACTIONS (1)
  - RASH [None]
